FAERS Safety Report 6129370-3 (Version None)
Quarter: 2009Q1

REPORT INFORMATION
  Report Type: 
  Country: None (occurrence: None)
  Receive Date: 20090324
  Receipt Date: 20090316
  Transmission Date: 20090719
  Serious: Yes (Other)
  Sender: FDA-Public Use
  Company Number: PHHY2009PT09633

PATIENT
  Sex: Female

DRUGS (1)
  1. ZOMETA [Suspect]
     Indication: METASTASES TO BONE
     Dosage: UNK
     Route: 042
     Dates: start: 20060504, end: 20080805

REACTIONS (6)
  - BONE DISORDER [None]
  - BONE FISTULA [None]
  - FISTULA DISCHARGE [None]
  - OSTEONECROSIS [None]
  - POST PROCEDURAL FISTULA [None]
  - TOOTH EXTRACTION [None]
